FAERS Safety Report 16932291 (Version 1)
Quarter: 2019Q4

REPORT INFORMATION
  Report Type: Spontaneous
  Country: SK (occurrence: SK)
  Receive Date: 20191017
  Receipt Date: 20191017
  Transmission Date: 20200122
  Serious: Yes (Other)
  Sender: FDA-Public Use
  Company Number: SK-GALDERMA-SK19061518

PATIENT
  Age: 78 Year
  Sex: Male

DRUGS (6)
  1. AMOXICILLIN WITH CLAVULANIC ACID [Concomitant]
     Active Substance: AMOXICILLIN\CLAVULANIC ACID
     Indication: CELLULITIS
  2. AMOXICILLIN WITH CLAVULANIC ACID [Concomitant]
     Active Substance: AMOXICILLIN\CLAVULANIC ACID
     Indication: PYREXIA
  3. DOXYCYCLINE. [Suspect]
     Active Substance: DOXYCYCLINE
     Indication: INFECTED NEOPLASM
     Route: 065
  4. AMOXICILLIN WITH CLAVULANIC ACID [Concomitant]
     Active Substance: AMOXICILLIN\CLAVULANIC ACID
     Indication: SKIN LESION
     Route: 065
  5. AMOXICILLIN WITH CLAVULANIC ACID [Concomitant]
     Active Substance: AMOXICILLIN\CLAVULANIC ACID
     Indication: C-REACTIVE PROTEIN INCREASED
  6. CEFUROXIME. [Concomitant]
     Active Substance: CEFUROXIME
     Indication: INFECTED NEOPLASM
     Route: 065

REACTIONS (7)
  - Intentional product use issue [Recovered/Resolved]
  - Myalgia [Unknown]
  - Arthralgia [Unknown]
  - Systemic lupus erythematosus [Unknown]
  - Drug ineffective for unapproved indication [Unknown]
  - Rash [Unknown]
  - Fatigue [Unknown]
